FAERS Safety Report 18469975 (Version 1)
Quarter: 2020Q4

REPORT INFORMATION
  Report Type: Spontaneous
  Country: US (occurrence: US)
  Receive Date: 20201105
  Receipt Date: 20201105
  Transmission Date: 20210114
  Serious: Yes (Other)
  Sender: FDA-Public Use
  Company Number: US-NAPPMUNDI-USA-2020-0156378

PATIENT
  Sex: Female

DRUGS (1)
  1. OXYCONTIN [Suspect]
     Active Substance: OXYCODONE HYDROCHLORIDE
     Indication: PROCEDURAL PAIN
     Route: 048

REACTIONS (5)
  - Quality of life decreased [Unknown]
  - Drug abuse [Unknown]
  - Asthenia [Unknown]
  - Drug dependence [Unknown]
  - Impaired work ability [Unknown]

NARRATIVE: CASE EVENT DATE: 1998
